FAERS Safety Report 19555461 (Version 1)
Quarter: 2021Q3

REPORT INFORMATION
  Report Type: Spontaneous
  Country: US (occurrence: US)
  Receive Date: 20210715
  Receipt Date: 20210715
  Transmission Date: 20211014
  Serious: Yes (Death, Other)
  Sender: FDA-Public Use
  Company Number: US-SLATE RUN PHARMACEUTICALS-21US000578

PATIENT

DRUGS (11)
  1. TACROLIMUS. [Concomitant]
     Active Substance: TACROLIMUS
     Indication: PROPHYLAXIS AGAINST GRAFT VERSUS HOST DISEASE
  2. MYCOPHENOLATE MOFETIL. [Concomitant]
     Active Substance: MYCOPHENOLATE MOFETIL
     Indication: PROPHYLAXIS AGAINST GRAFT VERSUS HOST DISEASE
  3. LETERMOVIR [Concomitant]
     Active Substance: LETERMOVIR
     Indication: PNEUMONIA CYTOMEGALOVIRAL
  4. LETERMOVIR [Concomitant]
     Active Substance: LETERMOVIR
     Indication: CYTOMEGALOVIRUS INFECTION REACTIVATION
     Dosage: 480 MILLIGRAM, QD
     Route: 048
  5. GANCICLOVIR USP [Suspect]
     Active Substance: GANCICLOVIR
     Indication: CYTOMEGALOVIRUS INFECTION REACTIVATION
     Dosage: UNK
  6. GANCICLOVIR USP [Suspect]
     Active Substance: GANCICLOVIR
     Indication: PNEUMONIA CYTOMEGALOVIRAL
  7. CYCLOPHOSPHAMIDE. [Concomitant]
     Active Substance: CYCLOPHOSPHAMIDE
     Indication: PROPHYLAXIS AGAINST GRAFT VERSUS HOST DISEASE
  8. LETERMOVIR [Concomitant]
     Active Substance: LETERMOVIR
     Indication: CYTOMEGALOVIRUS VIRAEMIA
     Dosage: 480 MILLIGRAM, QD
     Route: 048
  9. FOSCARNET [Concomitant]
     Active Substance: FOSCARNET
     Indication: PNEUMONIA CYTOMEGALOVIRAL
  10. ACYCLOVIR [ACICLOVIR] [Concomitant]
     Active Substance: ACYCLOVIR
     Indication: ANTIVIRAL TREATMENT
  11. FOSCARNET [Concomitant]
     Active Substance: FOSCARNET
     Indication: CYTOMEGALOVIRUS INFECTION REACTIVATION
     Dosage: UNK

REACTIONS (4)
  - Off label use [Unknown]
  - Acute respiratory distress syndrome [Fatal]
  - Multiple organ dysfunction syndrome [Fatal]
  - Fluid overload [Unknown]
